FAERS Safety Report 7402039-0 (Version None)
Quarter: 2011Q2

REPORT INFORMATION
  Report Type: 
  Country: None (occurrence: None)
  Receive Date: 20110408
  Receipt Date: 20110328
  Transmission Date: 20111010
  Serious: Yes (Hospitalization)
  Sender: FDA-Public Use
  Company Number: FR-TEVA-274587ISR

PATIENT
  Sex: Female

DRUGS (2)
  1. PROPRANOLOL [Suspect]
     Indication: HYPERTENSION
     Route: 048
     Dates: start: 20100101
  2. FUROSEMIDE [Concomitant]
     Indication: PLEURISY
     Route: 048
     Dates: start: 20110224

REACTIONS (3)
  - HYPOTENSION [None]
  - BRONCHITIS [None]
  - PLEURISY [None]
